FAERS Safety Report 6524359-4 (Version None)
Quarter: 2010Q1

REPORT INFORMATION
  Report Type: 
  Country: None (occurrence: None)
  Receive Date: 20100101
  Receipt Date: 20091222
  Transmission Date: 20100710
  Serious: Yes (Hospitalization)
  Sender: FDA-Public Use
  Company Number: US-BIOGENIDEC-2009BI041060

PATIENT
  Age: 54 Year
  Sex: Male
  Weight: 79 kg

DRUGS (12)
  1. TYSABRI [Suspect]
     Indication: MULTIPLE SCLEROSIS
     Route: 042
     Dates: start: 20091002
  2. FRAGMIN [Concomitant]
     Indication: COAGULOPATHY
     Dosage: DOSE UNIT:17250
     Route: 058
  3. DIOVAN [Concomitant]
     Indication: HYPERTENSION
  4. LEVOTHYROXINE SODIUM [Concomitant]
     Indication: HYPOTHYROIDISM
  5. BACLOFEN [Concomitant]
     Indication: MUSCLE SPASMS
  6. VALIUM [Concomitant]
     Indication: ANXIETY
  7. FENTANYL CITRATE [Concomitant]
     Indication: BREAKTHROUGH PAIN
  8. TEMAZEPAM [Concomitant]
     Indication: SLEEP DISORDER
  9. KLONOPIN [Concomitant]
     Indication: ANXIETY
  10. TRAZODONE HCL [Concomitant]
     Indication: SLEEP DISORDER
  11. ASPIRIN [Concomitant]
     Indication: DRUG USE FOR UNKNOWN INDICATION
  12. METOPROLOL TARTRATE [Concomitant]
     Indication: HYPERTENSION

REACTIONS (2)
  - CORONARY ARTERY DISEASE [None]
  - ORAL FUNGAL INFECTION [None]
